FAERS Safety Report 20858571 (Version 3)
Quarter: 2022Q4

REPORT INFORMATION
  Report Type: Report from Study
  Country: US (occurrence: US)
  Receive Date: 20220522
  Receipt Date: 20221123
  Transmission Date: 20230113
  Serious: Yes (Other)
  Sender: FDA-Public Use
  Company Number: US-BRISTOL-MYERS SQUIBB COMPANY-2022-043666

PATIENT
  Age: 85 Year
  Sex: Male
  Weight: 90.71 kg

DRUGS (3)
  1. REVLIMID [Suspect]
     Active Substance: LENALIDOMIDE
     Indication: Plasma cell myeloma
     Route: 065
  2. REVLIMID [Suspect]
     Active Substance: LENALIDOMIDE
     Dosage: LOT NUMBER: A3799A, EXPIRY DATE: 30 NOV 2024
     Route: 048
  3. METAMUCIL [Concomitant]
     Active Substance: PLANTAGO SEED
     Indication: Product used for unknown indication
     Dosage: 3.4 G/12 G POWDER
     Route: 065

REACTIONS (3)
  - Peripheral swelling [Unknown]
  - Abscess of eyelid [Unknown]
  - Arthralgia [Unknown]
